FAERS Safety Report 21020186 (Version 3)
Quarter: 2022Q3

REPORT INFORMATION
  Report Type: Spontaneous
  Country: AU (occurrence: AU)
  Receive Date: 20220628
  Receipt Date: 20220809
  Transmission Date: 20221026
  Serious: Yes (Other)
  Sender: FDA-Public Use
  Company Number: AU-BIOVITRUM-2022AU08092

PATIENT
  Age: 13 Year
  Sex: Male

DRUGS (1)
  1. NITISINONE [Suspect]
     Active Substance: NITISINONE
     Indication: Tyrosinaemia
     Dosage: 1-2 MG/KG

REACTIONS (3)
  - Liver transplant [Unknown]
  - Hepatocellular carcinoma [Unknown]
  - Alpha 1 foetoprotein increased [Unknown]
